FAERS Safety Report 8184836-X (Version None)
Quarter: 2012Q1

REPORT INFORMATION
  Report Type: 
  Country: None (occurrence: None)
  Receive Date: 20120305
  Receipt Date: 20120222
  Transmission Date: 20120608
  Serious: Yes (Other)
  Sender: FDA-Public Use
  Company Number: US-ASTRAZENECA-2012SE12464

PATIENT

DRUGS (1)
  1. RHINOCORT [Suspect]
     Indication: SEASONAL ALLERGY
     Route: 045

REACTIONS (2)
  - CYSTIC FIBROSIS [None]
  - EPILEPSY [None]
